FAERS Safety Report 18196792 (Version 1)
Quarter: 2020Q3

REPORT INFORMATION
  Report Type: Report from Study
  Country: US (occurrence: US)
  Receive Date: 20200826
  Receipt Date: 20200826
  Transmission Date: 20201103
  Serious: Yes (Other)
  Sender: FDA-Public Use
  Company Number: US-AUROBINDO-AUR-APL-2020-044571

PATIENT

DRUGS (1)
  1. EVOMELA [Suspect]
     Active Substance: MELPHALAN HYDROCHLORIDE
     Indication: BONE MARROW CONDITIONING REGIMEN
     Dosage: UNK
     Route: 065

REACTIONS (84)
  - Tachypnoea [Recovered/Resolved]
  - Lymphocyte count decreased [Recovered/Resolved]
  - Febrile neutropenia [Recovered/Resolved]
  - Dry mouth [Recovered/Resolved]
  - Muscle spasticity [Recovered/Resolved]
  - Hypomagnesaemia [Recovered/Resolved]
  - Lethargy [Recovered/Resolved]
  - Chromaturia [Recovered/Resolved]
  - Respiratory failure [Recovered/Resolved]
  - Acute kidney injury [Recovered/Resolved]
  - Mental status changes [Recovered/Resolved]
  - Pain in extremity [Recovered/Resolved]
  - Platelet count decreased [Recovered/Resolved]
  - Rash maculo-papular [Recovered/Resolved]
  - Fall [Recovered/Resolved]
  - Hypokalaemia [Recovered/Resolved]
  - Oedema peripheral [Recovered/Resolved]
  - Hypophosphataemia [Recovered/Resolved]
  - Pleural effusion [Recovered/Resolved]
  - Hypernatraemia [Recovered/Resolved]
  - Dysarthria [Recovered/Resolved]
  - Decreased appetite [Recovered/Resolved]
  - Back pain [Recovered/Resolved]
  - Pericardial effusion [Recovered/Resolved]
  - Urinary tract infection [Recovered/Resolved]
  - Urine output decreased [Recovered/Resolved]
  - Endocarditis [Recovered/Resolved]
  - Colitis [Recovered/Resolved]
  - Diarrhoea [Recovered/Resolved]
  - Dysphagia [Recovered/Resolved]
  - Hyperuricaemia [Recovered/Resolved]
  - Shock haemorrhagic [Recovered/Resolved]
  - Orthostatic hypotension [Recovered/Resolved]
  - Atelectasis [Recovered/Resolved]
  - Dyspnoea [Recovered/Resolved]
  - Muscular weakness [Recovered/Resolved]
  - Hepatic failure [Recovered/Resolved]
  - Hypothermia [Recovered/Resolved]
  - Abdominal distension [Recovered/Resolved]
  - Proteinuria [Recovered/Resolved]
  - Anal incontinence [Recovered/Resolved]
  - Urinary retention [Recovered/Resolved]
  - Pollakiuria [Recovered/Resolved]
  - Suicidal ideation [Recovered/Resolved]
  - Urinary incontinence [Recovered/Resolved]
  - Haematochezia [Recovered/Resolved]
  - Hypotension [Recovered/Resolved]
  - White blood cell count decreased [Recovered/Resolved]
  - Hypoglycaemia [Recovered/Resolved]
  - Vulvitis [Recovered/Resolved]
  - Human herpesvirus 6 infection reactivation [Recovered/Resolved]
  - Middle ear inflammation [Recovered/Resolved]
  - Ascites [Recovered/Resolved]
  - Staphylococcal infection [Recovered/Resolved]
  - Sepsis [Recovered/Resolved]
  - Blood bilirubin increased [Recovered/Resolved]
  - Dizziness [Recovered/Resolved]
  - Neuropathy peripheral [Recovered/Resolved]
  - Presyncope [Recovered/Resolved]
  - Abdominal pain [Recovered/Resolved]
  - Urinary tract pain [Recovered/Resolved]
  - Hallucination [Recovered/Resolved]
  - Clostridium difficile infection [Recovered/Resolved]
  - Facial paralysis [Recovered/Resolved]
  - Blood alkaline phosphatase increased [Recovered/Resolved]
  - Injection site reaction [Recovered/Resolved]
  - Hyperkalaemia [Recovered/Resolved]
  - Hypocalcaemia [Recovered/Resolved]
  - Dyspepsia [Recovered/Resolved]
  - Hypertension [Recovered/Resolved]
  - Neutrophil count decreased [Recovered/Resolved]
  - Aspartate aminotransferase increased [Recovered/Resolved]
  - Otorrhoea [Recovered/Resolved]
  - Alanine aminotransferase increased [Recovered/Resolved]
  - Portal hypertension [Recovered/Resolved]
  - Stomatitis [Recovered/Resolved]
  - Hypoalbuminaemia [Recovered/Resolved]
  - Sinus tachycardia [Recovered/Resolved]
  - Depression [Recovered/Resolved]
  - Alopecia [Recovered/Resolved]
  - Angina pectoris [Recovered/Resolved]
  - Gastritis [Recovered/Resolved]
  - Multiple organ dysfunction syndrome [Recovered/Resolved]
  - Weight increased [Recovered/Resolved]

NARRATIVE: CASE EVENT DATE: 20180329
